FAERS Safety Report 12709894 (Version 1)
Quarter: 2016Q3

REPORT INFORMATION
  Report Type: Spontaneous
  Country: US (occurrence: US)
  Receive Date: 20160902
  Receipt Date: 20160902
  Transmission Date: 20161109
  Serious: Yes (Hospitalization)
  Sender: FDA-Public Use
  Company Number: None

PATIENT
  Age: 59 Year
  Sex: Male
  Weight: 90 kg

DRUGS (22)
  1. TESTOPEL [Suspect]
     Active Substance: TESTOSTERONE
     Indication: BLOOD TESTOSTERONE DECREASED
     Dosage: OTHER STRENGTH:;OTHER DOSE:PELLETS;OTHER FREQUENCY:4 TO 5 MONTHS;OTHER ROUTE:
     Route: 058
  2. ANASTROZOLE. [Concomitant]
     Active Substance: ANASTROZOLE
  3. REACTED IRON [Concomitant]
  4. THERA-LAX [Concomitant]
  5. TELMISARTAN. [Concomitant]
     Active Substance: TELMISARTAN
  6. GLUCOSAMINE [Concomitant]
     Active Substance: GLUCOSAMINE
  7. VITAMIN C [Concomitant]
     Active Substance: ASCORBIC ACID
  8. AMBIEN [Concomitant]
     Active Substance: ZOLPIDEM TARTRATE
  9. NORCO [Concomitant]
     Active Substance: ACETAMINOPHEN\HYDROCODONE BITARTRATE
  10. ASPRIN [Concomitant]
     Active Substance: ASPIRIN
  11. TRAZODONE [Concomitant]
     Active Substance: TRAZODONE HYDROCHLORIDE
  12. VITAMIN D [Concomitant]
     Active Substance: CHOLECALCIFEROL
  13. ALASKAN [Concomitant]
  14. CHONDROITIN [Concomitant]
     Active Substance: CHONDROITIN
  15. IODINE. [Concomitant]
     Active Substance: IODINE
  16. LEVITRA [Concomitant]
     Active Substance: VARDENAFIL HYDROCHLORIDE TRIHYDRATE
  17. LOVASA [Concomitant]
  18. STRATTERA [Concomitant]
     Active Substance: ATOMOXETINE HYDROCHLORIDE
  19. LYRICA [Concomitant]
     Active Substance: PREGABALIN
  20. CREATOR [Concomitant]
  21. TREXAMET [Concomitant]
  22. VIIBRYD [Concomitant]
     Active Substance: VILAZODONE HYDROCHLORIDE

REACTIONS (4)
  - Drug ineffective [None]
  - Myocardial infarction [None]
  - Dizziness [None]
  - Product quality issue [None]

NARRATIVE: CASE EVENT DATE: 20160418
